FAERS Safety Report 9062538 (Version 1)
Quarter: 2013Q1

REPORT INFORMATION
  Report Type: Spontaneous
  Country: US (occurrence: US)
  Receive Date: 20130111
  Receipt Date: 20130111
  Transmission Date: 20140127
  Serious: No
  Sender: FDA-Public Use
  Company Number: US-VIIV HEALTHCARE LIMITED-A0998019A

PATIENT
  Sex: Female

DRUGS (2)
  1. COMBIVIR [Suspect]
     Indication: INJURY ASSOCIATED WITH DEVICE
     Dosage: 1TAB PER DAY
     Route: 048
     Dates: start: 20121012, end: 20121015
  2. NO CONCURRENT MEDICATION [Concomitant]

REACTIONS (1)
  - Expired drug administered [Unknown]
